FAERS Safety Report 10234417 (Version 2)
Quarter: 2014Q2

REPORT INFORMATION
  Report Type: Report from Study
  Country: US (occurrence: US)
  Receive Date: 20140612
  Receipt Date: 20140612
  Transmission Date: 20141212
  Serious: Yes (Hospitalization)
  Sender: FDA-Public Use
  Company Number: US-BRISTOL-MYERS SQUIBB COMPANY-20871273

PATIENT
  Age: 72 Year
  Sex: Female
  Weight: 53.1 kg

DRUGS (12)
  1. NIVOLUMAB [Suspect]
     Indication: NEOPLASM
     Route: 042
     Dates: start: 20140506, end: 20140506
  2. IPILIMUMAB [Suspect]
     Indication: NEOPLASM
     Route: 042
     Dates: start: 20140506, end: 20140506
  3. TYLENOL [Concomitant]
     Route: 048
     Dates: start: 20130101
  4. CREON [Concomitant]
     Route: 048
     Dates: start: 20140201
  5. BRIMONIDINE TARTRATE [Concomitant]
     Route: 047
     Dates: start: 20130101
  6. PANTOPRAZOLE [Concomitant]
     Route: 048
     Dates: start: 20140101
  7. HYDROCHLOROTHIAZIDE [Concomitant]
     Dates: start: 20120101
  8. VANCOMYCIN [Concomitant]
     Route: 042
  9. PRIMAXIN [Concomitant]
     Route: 042
  10. MEDROL [Concomitant]
     Dosage: DOSEPACK PO
     Route: 048
  11. ACETAMINOPHEN [Concomitant]
     Route: 048
  12. ACETAMINOPHEN [Concomitant]
     Route: 048

REACTIONS (1)
  - Pyrexia [Recovered/Resolved]
